FAERS Safety Report 16112094 (Version 2)
Quarter: 2019Q2

REPORT INFORMATION
  Report Type: Spontaneous
  Country: BR (occurrence: BR)
  Receive Date: 20190325
  Receipt Date: 20190416
  Transmission Date: 20190711
  Serious: Yes (Hospitalization)
  Sender: FDA-Public Use
  Company Number: PHHY2019BR064185

PATIENT
  Sex: Female

DRUGS (1)
  1. EXELON PATCH [Suspect]
     Active Substance: RIVASTIGMINE
     Indication: DEMENTIA ALZHEIMER^S TYPE
     Dosage: 13.3 MG QD(PATCH 15 (CM2), 27 MG RIVASTIGMINE BASE)
     Route: 062

REACTIONS (7)
  - Infection [Recovered/Resolved]
  - Acute pulmonary oedema [Recovered/Resolved]
  - Wrong technique in product usage process [Unknown]
  - Cardiac arrest [Recovered/Resolved]
  - Product adhesion issue [Unknown]
  - Blister [Unknown]
  - Haemorrhage [Recovered/Resolved]
